FAERS Safety Report 12827278 (Version 1)
Quarter: 2016Q4

REPORT INFORMATION
  Report Type: Spontaneous
  Country: US (occurrence: US)
  Receive Date: 20161007
  Receipt Date: 20161007
  Transmission Date: 20170207
  Serious: No
  Sender: FDA-Public Use
  Company Number: US-INDIVIOR LIMITED-INDV-086111-2015

PATIENT
  Sex: Female

DRUGS (2)
  1. SUBOXONE [Suspect]
     Active Substance: BUPRENORPHINE HYDROCHLORIDE\NALOXONE HYDROCHLORIDE
     Indication: DRUG DEPENDENCE
     Dosage: 8 MG, QD FOR ABOUT 5 MONTHS
     Route: 060
     Dates: start: 201508, end: 20151201
  2. BUPRENORPHINE/NALOXONE GENERIC [Suspect]
     Active Substance: BUPRENORPHINE\NALOXONE
     Indication: DRUG DEPENDENCE
     Dosage: 8 MG, DAILY
     Route: 060
     Dates: start: 20151202

REACTIONS (4)
  - Oral pain [Recovered/Resolved]
  - Oral mucosal discolouration [Recovered/Resolved]
  - Oral discomfort [Recovered/Resolved]
  - Oral administration complication [Unknown]

NARRATIVE: CASE EVENT DATE: 2015
